FAERS Safety Report 10521453 (Version 2)
Quarter: 2016Q4

REPORT INFORMATION
  Report Type: Spontaneous
  Country: TR (occurrence: TR)
  Receive Date: 20141016
  Receipt Date: 20161108
  Transmission Date: 20170206
  Serious: Yes (Life-Threatening, Hospitalization)
  Sender: FDA-Public Use
  Company Number: TR-RANBAXY-2014R1-86403

PATIENT
  Age: 14 Year
  Sex: Female

DRUGS (1)
  1. ISONIAZID. [Suspect]
     Active Substance: ISONIAZID
     Indication: PRODUCT USED FOR UNKNOWN INDICATION
     Dosage: 10 DF, SINGLE
     Route: 065

REACTIONS (6)
  - Suicide attempt [Unknown]
  - Metabolic acidosis [Unknown]
  - Haemodynamic instability [Unknown]
  - Seizure [Recovered/Resolved]
  - Overdose [Unknown]
  - Loss of consciousness [Recovering/Resolving]
